FAERS Safety Report 4924258-5 (Version None)
Quarter: 2006Q1

REPORT INFORMATION
  Report Type: 
  Country: None (occurrence: None)
  Receive Date: 20060221
  Receipt Date: 20060206
  Transmission Date: 20060701
  Serious: Yes (Hospitalization, Other)
  Sender: FDA-Public Use
  Company Number: 2006018988

PATIENT
  Sex: Female

DRUGS (3)
  1. NEURONTIN [Suspect]
     Indication: CHRONIC FATIGUE SYNDROME
     Dosage: (3 IN 1 D), ORAL
     Route: 048
  2. NEURONTIN [Suspect]
     Indication: FEELING HOT
     Dosage: (3 IN 1 D), ORAL
     Route: 048
  3. NEURONTIN [Suspect]
     Indication: MALAISE
     Dosage: (3 IN 1 D), ORAL
     Route: 048

REACTIONS (3)
  - AGGRESSION [None]
  - SELF INJURIOUS BEHAVIOUR [None]
  - SUICIDE ATTEMPT [None]
